FAERS Safety Report 25020817 (Version 3)
Quarter: 2025Q4

REPORT INFORMATION
  Report Type: Spontaneous
  Country: US (occurrence: US)
  Receive Date: 20250227
  Receipt Date: 20251223
  Transmission Date: 20260117
  Serious: Yes (Hospitalization, Other)
  Sender: SANOFI AVENTIS
  Company Number: US-SA-2025SA059411

PATIENT
  Age: 16 Year
  Sex: Female

DRUGS (2)
  1. DUPIXENT [Suspect]
     Active Substance: DUPILUMAB
     Indication: Eosinophilic oesophagitis
     Dosage: 300 MG, QW
     Route: 058
     Dates: start: 20241113, end: 2025
  2. DUPIXENT [Suspect]
     Active Substance: DUPILUMAB
     Dosage: 300 MG, QW
     Route: 058
     Dates: start: 2025

REACTIONS (19)
  - Kidney infection [Unknown]
  - Nephrolithiasis [Unknown]
  - COVID-19 [Unknown]
  - Norovirus infection [Unknown]
  - Vomiting [Unknown]
  - Dehydration [Unknown]
  - Diarrhoea [Unknown]
  - Blood potassium decreased [Unknown]
  - Escherichia infection [Unknown]
  - Urinary tract infection [Unknown]
  - Hospitalisation [Unknown]
  - Empty sella syndrome [Unknown]
  - Gait disturbance [Recovered/Resolved]
  - Areflexia [Recovered/Resolved]
  - Headache [Recovered/Resolved]
  - Asthma [Recovered/Resolved]
  - Product dose omission issue [Recovered/Resolved]
  - Cough [Recovered/Resolved]
  - Dyspnoea [Recovered/Resolved]

NARRATIVE: CASE EVENT DATE: 20250101
